FAERS Safety Report 14898452 (Version 3)
Quarter: 2018Q2

REPORT INFORMATION
  Report Type: Report from Study
  Country: DE (occurrence: DE)
  Receive Date: 20180515
  Receipt Date: 20180529
  Transmission Date: 20180711
  Serious: Yes (Hospitalization, Other)
  Sender: FDA-Public Use
  Company Number: DE-BEH-2018090490

PATIENT
  Age: 50 Year
  Sex: Male
  Weight: 93 kg

DRUGS (6)
  1. PRIVIGEN [Suspect]
     Active Substance: HUMAN IMMUNOGLOBULIN G
     Dosage: UNK
     Route: 042
     Dates: start: 20150527
  2. PRIVIGEN [Suspect]
     Active Substance: HUMAN IMMUNOGLOBULIN G
     Dosage: UNK
     Route: 042
  3. CORTISONE [Concomitant]
     Active Substance: CORTISONE\HYDROCORTISONE
  4. PRIVIGEN [Suspect]
     Active Substance: HUMAN IMMUNOGLOBULIN G
     Dosage: UNK
     Route: 042
  5. PRIVIGEN [Suspect]
     Active Substance: HUMAN IMMUNOGLOBULIN G
     Indication: CHRONIC INFLAMMATORY DEMYELINATING POLYRADICULONEUROPATHY
     Dosage: 150 G, TOT
     Route: 042
     Dates: start: 20170508, end: 20170510
  6. AZATHIOPRIN [Concomitant]
     Active Substance: AZATHIOPRINE
     Indication: CHRONIC INFLAMMATORY DEMYELINATING POLYRADICULONEUROPATHY
     Dosage: 250 MG, QD
     Route: 048
     Dates: start: 20170421

REACTIONS (23)
  - Pulmonary sarcoidosis [Recovered/Resolved]
  - Yersinia infection [Recovered/Resolved]
  - Hypergammaglobulinaemia benign monoclonal [Recovered/Resolved]
  - Dyspnoea [Recovered/Resolved]
  - Cutaneous sarcoidosis [Recovered/Resolved]
  - Antinuclear antibody increased [Recovered/Resolved]
  - Gastritis [Recovered/Resolved]
  - Nausea [Recovered/Resolved]
  - Peripheral swelling [Recovered/Resolved]
  - Vein disorder [Recovered/Resolved]
  - Neurosarcoidosis [Recovered/Resolved]
  - Hypoaesthesia [Recovered/Resolved]
  - Infectious mononucleosis [Recovered/Resolved]
  - Thyroid mass [Recovered/Resolved]
  - Dyspnoea exertional [Recovered/Resolved]
  - Liver sarcoidosis [Recovered/Resolved]
  - Cold agglutinins positive [Recovered/Resolved]
  - Constipation [Recovered/Resolved]
  - Fatigue [Recovered/Resolved]
  - Immunoglobulins increased [Recovered/Resolved]
  - Lymphoedema [Recovered/Resolved]
  - Skin disorder [Recovered/Resolved]
  - Vomiting [Recovered/Resolved]
